FAERS Safety Report 14970318 (Version 1)
Quarter: 2018Q2

REPORT INFORMATION
  Report Type: Spontaneous
  Country: US (occurrence: US)
  Receive Date: 20180604
  Receipt Date: 20180604
  Transmission Date: 20180711
  Serious: No
  Sender: FDA-Public Use
  Company Number: US-ALLERGAN-1765847US

PATIENT
  Age: 45 Year

DRUGS (1)
  1. KYBELLA [Suspect]
     Active Substance: DEOXYCHOLIC ACID
     Indication: CONGENITAL JAW MALFORMATION
     Dosage: 5 UNITS, SINGLE
     Route: 058

REACTIONS (1)
  - Off label use [Unknown]
